FAERS Safety Report 16266077 (Version 3)
Quarter: 2019Q2

REPORT INFORMATION
  Report Type: Spontaneous
  Country: US (occurrence: US)
  Receive Date: 20190502
  Receipt Date: 20190626
  Transmission Date: 20190711
  Serious: Yes (Other)
  Sender: FDA-Public Use
  Company Number: US-PFIZER INC-2019180062

PATIENT
  Age: 76 Year
  Sex: Female
  Weight: 68 kg

DRUGS (1)
  1. IBRANCE [Suspect]
     Active Substance: PALBOCICLIB
     Indication: BREAST CANCER METASTATIC
     Dosage: 125 MG, CYCLIC,(DAY 1-21 Q 28 DAYS)
     Route: 048

REACTIONS (4)
  - White blood cell count decreased [Unknown]
  - Food poisoning [Unknown]
  - Product dose omission [Unknown]
  - Haemoglobin decreased [Unknown]
